FAERS Safety Report 10202192 (Version 6)
Quarter: 2014Q3

REPORT INFORMATION
  Report Type: Spontaneous
  Country: US (occurrence: US)
  Receive Date: 20140528
  Receipt Date: 20140703
  Transmission Date: 20150326
  Serious: Yes (Death, Hospitalization)
  Sender: FDA-Public Use
  Company Number: US-BAXTER-2014BAX026078

PATIENT
  Age: 74 Year
  Sex: Female

DRUGS (1)
  1. DIANEAL LOW CALCIUM PERITONEAL DIALYSIS SOLUTION WITH DEXTROSE [Suspect]
     Active Substance: CALCIUM CHLORIDE\DEXTROSE\MAGNESIUM CHLORIDE\SODIUM CHLORIDE\SODIUM LACTATE
     Indication: PERITONEAL DIALYSIS
     Route: 033
     Dates: start: 2013, end: 20140521

REACTIONS (6)
  - Coagulopathy [Recovering/Resolving]
  - Oedema peripheral [Recovering/Resolving]
  - Staphylococcal infection [Recovering/Resolving]
  - Hypotension [Recovering/Resolving]
  - Cardiac failure [Fatal]
  - Calciphylaxis [Unknown]

NARRATIVE: CASE EVENT DATE: 20140516
